FAERS Safety Report 12622772 (Version 1)
Quarter: 2016Q3

REPORT INFORMATION
  Report Type: Report from Study
  Country: CA (occurrence: CA)
  Receive Date: 20160804
  Receipt Date: 20160804
  Transmission Date: 20161109
  Serious: Yes (Other)
  Sender: FDA-Public Use
  Company Number: CA-JNJFOC-20160801371

PATIENT
  Sex: Female
  Weight: 97.6 kg

DRUGS (1)
  1. REMICADE [Suspect]
     Active Substance: INFLIXIMAB
     Indication: ARTHRITIS
     Route: 042
     Dates: start: 20141112

REACTIONS (5)
  - Asthma [Unknown]
  - Product use issue [Unknown]
  - Off label use [Unknown]
  - Ear infection [Unknown]
  - Bronchitis [Unknown]
